FAERS Safety Report 7134560-7 (Version None)
Quarter: 2010Q4

REPORT INFORMATION
  Report Type: 
  Country: None (occurrence: None)
  Receive Date: 20101203
  Receipt Date: 20101130
  Transmission Date: 20110411
  Serious: Yes (Death, Hospitalization)
  Sender: FDA-Public Use
  Company Number: FR-SANOFI-AVENTIS-2010SA072475

PATIENT
  Age: 57 Year
  Sex: Male

DRUGS (2)
  1. TAXOTERE [Suspect]
     Indication: LUNG SQUAMOUS CELL CARCINOMA STAGE IV
     Dates: start: 20100614, end: 20100614
  2. TAXOTERE [Suspect]
     Dates: start: 20100825, end: 20100825

REACTIONS (3)
  - ENTEROCOLITIS HAEMORRHAGIC [None]
  - MULTI-ORGAN FAILURE [None]
  - SHOCK HAEMORRHAGIC [None]
